FAERS Safety Report 9008087 (Version 1)
Quarter: 2013Q1

REPORT INFORMATION
  Report Type: Spontaneous
  Country: US (occurrence: US)
  Receive Date: 20130111
  Receipt Date: 20130111
  Transmission Date: 20140127
  Serious: Yes (Other)
  Sender: FDA-Public Use
  Company Number: US-009507513-0909USA03392

PATIENT
  Age: 6 Year
  Sex: Male
  Weight: 22.23 kg

DRUGS (2)
  1. SINGULAIR [Suspect]
     Indication: ASTHMA
     Dosage: 1 TABLET DAILY,4 MG, QD
     Route: 048
     Dates: start: 20070901, end: 2009
  2. SINGULAIR [Suspect]
     Dosage: 5 MG, QD
     Route: 048
     Dates: start: 2009, end: 20090305

REACTIONS (9)
  - Abnormal behaviour [Unknown]
  - Aggression [Unknown]
  - Anxiety [Unknown]
  - Cognitive disorder [Unknown]
  - Crying [Unknown]
  - Depressed mood [Unknown]
  - Haemorrhage [Unknown]
  - Mood altered [Unknown]
  - Onychophagia [Unknown]
